FAERS Safety Report 9321893 (Version 2)
Quarter: 2015Q1

REPORT INFORMATION
  Report Type: Spontaneous
  Country: US (occurrence: None)
  Receive Date: 20130528
  Receipt Date: 20150211
  Transmission Date: 20150721
  Serious: Yes (Disabling, Other)
  Sender: FDA-Public Use
  Company Number: 1303-355

PATIENT
  Age: 72 Year
  Sex: Male

DRUGS (1)
  1. EYLEA [Suspect]
     Active Substance: AFLIBERCEPT
     Indication: PRODUCT USED FOR UNKNOWN INDICATION
     Dosage: LAST EYLEA DOSE BEFORE THE EVENT (PATIENT RECEIVED 8 EYLEA INJECTIONS)
     Dates: start: 20130228, end: 20130228

REACTIONS (3)
  - Non-infectious endophthalmitis [None]
  - Pseudoendophthalmitis [None]
  - Blindness transient [None]

NARRATIVE: CASE EVENT DATE: 20130302
